FAERS Safety Report 7247696-7 (Version None)
Quarter: 2011Q1

REPORT INFORMATION
  Report Type: 
  Country: None (occurrence: None)
  Receive Date: 20110127
  Receipt Date: 20110124
  Transmission Date: 20110831
  Serious: No
  Sender: FDA-Public Use
  Company Number: ZA-JNJFOC-20110105493

PATIENT
  Sex: Female

DRUGS (6)
  1. DURAGESIC-100 [Suspect]
     Route: 062
  2. DURAGESIC-100 [Suspect]
     Route: 062
  3. DOXYFENE [Concomitant]
     Indication: PAIN
     Route: 065
  4. DURAGESIC-100 [Suspect]
     Indication: PAIN
     Dosage: PATIENT WAS USING THE 12.5 UG/HR AND 25 UG/HR PATCH TOGETHER
     Route: 062
  5. VALIUM [Concomitant]
     Indication: PAIN
     Route: 065
  6. DURAGESIC-100 [Suspect]
     Route: 062

REACTIONS (12)
  - FEELING COLD [None]
  - MUSCLE SPASMS [None]
  - COUGH [None]
  - AMNESIA [None]
  - WRONG TECHNIQUE IN DRUG USAGE PROCESS [None]
  - MUSCLE TWITCHING [None]
  - DRUG INEFFECTIVE [None]
  - PRODUCT QUALITY ISSUE [None]
  - NAUSEA [None]
  - FATIGUE [None]
  - HYPERHIDROSIS [None]
  - FEELING HOT [None]
